FAERS Safety Report 9355724 (Version 2)
Quarter: 2013Q4

REPORT INFORMATION
  Report Type: Spontaneous
  Country: US (occurrence: US)
  Receive Date: 20130619
  Receipt Date: 20131126
  Transmission Date: 20140711
  Serious: Yes (Death, Hospitalization)
  Sender: FDA-Public Use
  Company Number: US-B.I. PHARMACEUTICALS,INC./RIDGEFIELD-2013-BI-16754BP

PATIENT
  Age: 81 Year
  Sex: Female
  Weight: 64.41 kg

DRUGS (20)
  1. PRADAXA [Suspect]
     Indication: ATRIAL FIBRILLATION
     Dosage: 300 MG
     Route: 048
     Dates: start: 20120716, end: 20120721
  2. ACETAMINOPHEN + HYDROCODONE [Concomitant]
     Indication: PAIN
     Route: 048
  3. LOPERAMIDE HYDROCHLORIDE [Concomitant]
     Route: 048
  4. METOCLOPRAMIDE HCL [Concomitant]
     Dosage: 30 MG
     Route: 048
  5. GABAPENTIN [Concomitant]
     Dosage: 600 MG
     Route: 048
  6. LOPID [Concomitant]
     Dosage: 1200 MG
     Route: 048
     Dates: start: 201112, end: 20120804
  7. BACITRACIN [Concomitant]
     Route: 061
  8. NEXIUM [Concomitant]
     Dosage: 20 MG
     Route: 048
     Dates: start: 200810, end: 20120804
  9. MACROBID [Concomitant]
     Indication: ANTIBIOTIC PROPHYLAXIS
     Dosage: 100 MG
     Route: 048
     Dates: start: 200908, end: 20120804
  10. CETIRIZINE [Concomitant]
     Dosage: 10 MG
     Route: 048
     Dates: end: 20120804
  11. FLUTICASONE [Concomitant]
     Dosage: 2 PUF
  12. GUAIFENESIN [Concomitant]
     Dosage: 1200 MG
     Route: 048
  13. LISINOPRIL [Concomitant]
     Dosage: 20 MG
     Route: 048
  14. ERYTHROMYCIN [Concomitant]
  15. HYDROXYPROPYLMETHYLCELLULOSE [Concomitant]
  16. LIDOCAINE [Concomitant]
  17. ZOCOR [Concomitant]
     Dosage: 10 MG
     Route: 048
     Dates: start: 201112, end: 20120804
  18. AMOXICILLIN [Concomitant]
     Route: 048
  19. ALLEGRA [Concomitant]
     Dates: start: 20110614, end: 20120804
  20. AMIODARONE [Concomitant]
     Dates: start: 201103, end: 20120804

REACTIONS (2)
  - Subarachnoid haemorrhage [Fatal]
  - Fall [Unknown]
